FAERS Safety Report 5587783-2 (Version None)
Quarter: 2008Q1

REPORT INFORMATION
  Report Type: 
  Country: None (occurrence: None)
  Receive Date: 20080108
  Receipt Date: 20071227
  Transmission Date: 20080703
  Serious: Yes (Death, Hospitalization)
  Sender: FDA-Public Use
  Company Number: POMP-10000001

PATIENT
  Age: 2 Month
  Sex: Female
  Weight: 3.5 kg

DRUGS (12)
  1. MYOZYME [Suspect]
     Indication: GLYCOGEN STORAGE DISEASE TYPE II
     Dosage: 20 MG/KG, ONCE, INTRAVENOUS
     Route: 042
     Dates: start: 20071212, end: 20071212
  2. MILRINONE (MILRINONE) [Concomitant]
  3. FENTANYL [Concomitant]
  4. DOPAMINE HCL [Concomitant]
  5. ESMOLOL (ESMOLOL) [Concomitant]
  6. EPINEPHRINE [Concomitant]
  7. PANCURONIUM [Concomitant]
  8. FUROSEMIDE [Concomitant]
  9. VANCOMYCIN [Concomitant]
  10. RANITIDINE [Concomitant]
  11. CALCIUM GLUCONATE [Concomitant]
  12. ACETAMINOPHEN [Concomitant]

REACTIONS (4)
  - BRADYCARDIA [None]
  - CARDIAC ARREST [None]
  - HYPOPERFUSION [None]
  - PYREXIA [None]
